FAERS Safety Report 23140915 (Version 7)
Quarter: 2025Q2

REPORT INFORMATION
  Report Type: Spontaneous
  Country: US (occurrence: US)
  Receive Date: 20231103
  Receipt Date: 20250612
  Transmission Date: 20250717
  Serious: Yes (Other)
  Sender: AMGEN
  Company Number: US-AMGEN-USASP2023195076

PATIENT
  Sex: Female

DRUGS (7)
  1. OTEZLA [Suspect]
     Active Substance: APREMILAST
     Indication: Psoriatic arthropathy
     Dosage: 30 MILLIGRAM, BID (TAKE 1 TABLET (30 MG) BY MOUTH EVERY 12 HOURS)
     Route: 048
     Dates: start: 20220519, end: 2025
  2. OTEZLA [Suspect]
     Active Substance: APREMILAST
     Indication: Rheumatoid arthritis
  3. MELATONIN [Concomitant]
     Active Substance: MELATONIN
  4. METHOTREXATE [Concomitant]
     Active Substance: METHOTREXATE
  5. OZEMPIC [Concomitant]
     Active Substance: SEMAGLUTIDE
  6. RINVOQ [Concomitant]
     Active Substance: UPADACITINIB
  7. TRIUMEQ [Concomitant]
     Active Substance: ABACAVIR SULFATE\DOLUTEGRAVIR SODIUM\LAMIVUDINE

REACTIONS (9)
  - Psoriatic arthropathy [Not Recovered/Not Resolved]
  - Rheumatoid arthritis [Not Recovered/Not Resolved]
  - Drug ineffective [Unknown]
  - Tooth disorder [Unknown]
  - Infection [Not Recovered/Not Resolved]
  - Therapy interrupted [Unknown]
  - Abdominal pain upper [Unknown]
  - Nausea [Not Recovered/Not Resolved]
  - Vomiting [Not Recovered/Not Resolved]
